FAERS Safety Report 9580858 (Version 1)
Quarter: 2013Q4

REPORT INFORMATION
  Report Type: Spontaneous
  Country: US (occurrence: None)
  Receive Date: 20131001
  Receipt Date: 20131001
  Transmission Date: 20140711
  Serious: No
  Sender: FDA-Public Use
  Company Number: None

PATIENT
  Age: 35 Year
  Sex: Female
  Weight: 48.54 kg

DRUGS (1)
  1. CIPROFLOXACIN [Suspect]
     Indication: URINARY TRACT INFECTION
     Dosage: TABLET 2X1 FOR 3 DAYS (TOTAL 6) 2 TIMES PER DAY FOR 3 DAYS(TOTAL 3 PILLS)
     Route: 048
     Dates: start: 20130828, end: 20130828

REACTIONS (7)
  - Headache [None]
  - Pruritus [None]
  - Rash generalised [None]
  - Urticaria [None]
  - Dyspepsia [None]
  - Peripheral coldness [None]
  - Drug hypersensitivity [None]
